FAERS Safety Report 4303507-0 (Version None)
Quarter: 2004Q1

REPORT INFORMATION
  Report Type: 
  Country: None (occurrence: None)
  Receive Date: 20040224
  Receipt Date: 20040224
  Transmission Date: 20041129
  Serious: Yes (Other)
  Sender: FDA-Public Use
  Company Number: None

PATIENT
  Age: 21 Year
  Sex: Female
  Weight: 49.8957 kg

DRUGS (4)
  1. COGENTIN [Suspect]
     Indication: EXTRAPYRAMIDAL DISORDER
     Dosage: 1 MG 4 DOSES ORAL
     Route: 048
     Dates: start: 20031112, end: 20031112
  2. SUDAFED 30 MG [Suspect]
     Indication: NASAL CONGESTION
     Dosage: 30 MG TABS 60 MG ORAL
     Route: 048
     Dates: start: 20031112, end: 20031112
  3. ATIVAN [Concomitant]
  4. AMBIEN [Concomitant]

REACTIONS (4)
  - DISORIENTATION [None]
  - HALLUCINATION, VISUAL [None]
  - NASAL CONGESTION [None]
  - TREMOR [None]
